FAERS Safety Report 4712023-3 (Version None)
Quarter: 2005Q3

REPORT INFORMATION
  Report Type: 
  Country: None (occurrence: None)
  Receive Date: 20050711
  Receipt Date: 20050711
  Transmission Date: 20060218
  Serious: Yes (Life-Threatening)
  Sender: FDA-Public Use
  Company Number: None

PATIENT
  Sex: Female
  Weight: 74.8435 kg

DRUGS (2)
  1. ZITHROMAX [Suspect]
     Indication: BRONCHITIS
     Dosage: 250 MG    1X/DAY    ORAL
     Route: 048
     Dates: start: 20050405, end: 20050409
  2. ALBUTEROL AND FLOVENT 220 -FLUTICASONE PROPRIONATE- [Concomitant]

REACTIONS (2)
  - URTICARIA [None]
  - WHEEZING [None]
